APPROVED DRUG PRODUCT: ALBENDAZOLE
Active Ingredient: ALBENDAZOLE
Strength: 200MG
Dosage Form/Route: TABLET;ORAL
Application: A210434 | Product #001
Applicant: CIPLA LTD
Approved: Sep 21, 2018 | RLD: No | RS: No | Type: DISCN